FAERS Safety Report 5907680-X (Version None)
Quarter: 2008Q4

REPORT INFORMATION
  Report Type: 
  Country: None (occurrence: None)
  Receive Date: 20081003
  Receipt Date: 19970304
  Transmission Date: 20090506
  Serious: Yes (Death, Life-Threatening)
  Sender: FDA-Public Use
  Company Number: US-ROCHE-76511

PATIENT
  Sex: Male

DRUGS (11)
  1. MYCOPHENOLATE MOFETIL [Suspect]
     Route: 048
     Dates: start: 19961030, end: 19961104
  2. PLACEBO [Suspect]
     Route: 042
     Dates: start: 19961030, end: 19961104
  3. CELLCEPT [Suspect]
     Route: 048
  4. NEORAL [Concomitant]
  5. PREDNISONE [Concomitant]
  6. OS-CAL [Concomitant]
  7. ROCALTROL [Concomitant]
  8. SUPRES [Concomitant]
     Dosage: REPORTED AS SUPRES SS
  9. MYCELEX [Concomitant]
  10. GANCICLOVIR [Concomitant]
  11. VITAMIN AND MINERAL PRENATAL SUPPLEMENT W/ FOLIC ACID CAP [Concomitant]
     Dosage: REPORTED AS IBERET FOLATE

REACTIONS (2)
  - DEATH [None]
  - LYMPHOMA [None]
